FAERS Safety Report 4863485-2 (Version None)
Quarter: 2005Q4

REPORT INFORMATION
  Report Type: 
  Country: None (occurrence: None)
  Receive Date: 20051222
  Receipt Date: 20050301
  Transmission Date: 20060501
  Serious: No
  Sender: FDA-Public Use
  Company Number: US-GLAXOSMITHKLINE-A0547780A

PATIENT
  Age: 86 Year
  Sex: Female

DRUGS (10)
  1. FLONASE [Suspect]
     Dosage: 2SPR TWICE PER DAY
     Route: 045
     Dates: start: 20040201
  2. UNKNOWN MEDICATION [Concomitant]
  3. CELEBREX [Concomitant]
  4. ZOLOFT [Concomitant]
  5. RANITIDINE [Concomitant]
  6. TRIAMTERENE [Concomitant]
  7. ENALAPRIL [Concomitant]
  8. ASPIRIN [Concomitant]
  9. TRAZODONE HCL [Concomitant]
  10. METHOCARBAMOL [Concomitant]

REACTIONS (2)
  - ANOSMIA [None]
  - DRUG INEFFECTIVE [None]
